FAERS Safety Report 10708092 (Version 5)
Quarter: 2015Q2

REPORT INFORMATION
  Report Type: Spontaneous
  Country: US (occurrence: US)
  Receive Date: 20150113
  Receipt Date: 20150605
  Transmission Date: 20150821
  Serious: Yes (Disabling)
  Sender: FDA-Public Use
  Company Number: US-009507513-1205USA05020

PATIENT
  Sex: Male
  Weight: 79.37 kg

DRUGS (3)
  1. PROPECIA [Suspect]
     Active Substance: FINASTERIDE
     Indication: ANDROGENETIC ALOPECIA
     Dosage: 1 MG, QD
     Route: 048
     Dates: start: 2002, end: 201202
  2. FINASTERIDE. [Suspect]
     Active Substance: FINASTERIDE
     Indication: ANDROGENETIC ALOPECIA
     Dosage: 1 MG, QD
     Route: 048
  3. PROSCAR [Suspect]
     Active Substance: FINASTERIDE
     Indication: ANDROGENETIC ALOPECIA
     Dosage: UNK
     Route: 048
     Dates: start: 2006, end: 2011

REACTIONS (45)
  - Generalised anxiety disorder [Not Recovered/Not Resolved]
  - Heat stroke [Unknown]
  - Peyronie^s disease [Unknown]
  - Anogenital warts [Unknown]
  - Blood pressure increased [Unknown]
  - Insomnia [Unknown]
  - Organic erectile dysfunction [Not Recovered/Not Resolved]
  - Herpes simplex [Unknown]
  - Fatigue [Unknown]
  - Benign penile neoplasm [Unknown]
  - Rash [Recovered/Resolved]
  - Sexual dysfunction [Not Recovered/Not Resolved]
  - Depression [Not Recovered/Not Resolved]
  - Eczema [Unknown]
  - Social problem [Unknown]
  - Drug ineffective [Unknown]
  - Cognitive disorder [Recovering/Resolving]
  - Ejaculation failure [Not Recovered/Not Resolved]
  - Loss of libido [Not Recovered/Not Resolved]
  - Disturbance in attention [Unknown]
  - Gastrooesophageal reflux disease [Unknown]
  - Skin striae [Unknown]
  - Hypoaesthesia [Unknown]
  - Fatigue [Unknown]
  - Lymphadenopathy [Unknown]
  - Asthenia [Unknown]
  - Penile ulceration [Unknown]
  - Skin striae [Unknown]
  - Dermal cyst [Unknown]
  - Ligament sprain [Unknown]
  - Arthralgia [Unknown]
  - Joint swelling [Unknown]
  - Drug ineffective [Unknown]
  - Melanocytic naevus [Unknown]
  - Stress [Unknown]
  - Adjustment disorder [Unknown]
  - Bipolar disorder [Unknown]
  - Adverse drug reaction [Unknown]
  - Drug administration error [Unknown]
  - Psoriasis [Unknown]
  - Mood swings [Unknown]
  - Paranoia [Unknown]
  - Dysuria [Unknown]
  - Gynaecomastia [Unknown]
  - Gynaecomastia [Recovered/Resolved]

NARRATIVE: CASE EVENT DATE: 2003
